FAERS Safety Report 9007232 (Version 1)
Quarter: 2013Q1

REPORT INFORMATION
  Report Type: Spontaneous
  Country: US (occurrence: US)
  Receive Date: 20130110
  Receipt Date: 20130110
  Transmission Date: 20140127
  Serious: Yes (Hospitalization)
  Sender: FDA-Public Use
  Company Number: US-009507513-1301USA001831

PATIENT
  Age: 53 Year
  Sex: Female

DRUGS (3)
  1. SINGULAIR [Suspect]
     Indication: ASTHMA
     Dosage: 1 DOSE FORM (1 IN 1 DAY)
     Route: 048
  2. COSYNTROPIN [Suspect]
     Indication: ILL-DEFINED DISORDER
     Dosage: 1 MG, 1 IN 1 D
     Route: 030
  3. SOLU-MEDROL [Suspect]
     Dosage: 1 MG/KG, IN 1D
     Route: 030

REACTIONS (3)
  - Peripheral sensorimotor neuropathy [Unknown]
  - Neuritis [Unknown]
  - Allergic granulomatous angiitis [Unknown]
